FAERS Safety Report 10947709 (Version 1)
Quarter: 2015Q1

REPORT INFORMATION
  Report Type: Spontaneous
  Country: GB (occurrence: GB)
  Receive Date: 20150324
  Receipt Date: 20150324
  Transmission Date: 20150721
  Serious: Yes (Other)
  Sender: FDA-Public Use
  Company Number: GB-009507513-1503GBR008718

PATIENT
  Age: 91 Year
  Sex: Male
  Weight: 61 kg

DRUGS (7)
  1. ANUSOL (BISMUTH OXIDE (+) BISMUTH SUBGALLATE (+) PERUVIAN BALSAM (+) Z [Concomitant]
     Dosage: APPLY TWICE A DAY AFTER A BOWEL MOVEMENT
     Dates: start: 20141121
  2. INDORAMIN [Concomitant]
     Active Substance: INDORAMIN
     Dosage: 1 DF, QD
     Dates: start: 20141121
  3. GANFORT [Concomitant]
     Active Substance: BIMATOPROST\TIMOLOL
     Dosage: ONE DROP ONCE DAILY BOTH EYES.
     Route: 050
     Dates: start: 20141121
  4. ADCAL (CALCIUM CARBONATE) [Concomitant]
     Active Substance: CALCIUM CARBONATE
     Dosage: 2 DF, BID
     Dates: start: 20141121
  5. LOSARTAN POTASSIUM. [Suspect]
     Active Substance: LOSARTAN POTASSIUM
     Dosage: 1 DF, QD
     Dates: start: 20150114
  6. RAMIPRIL. [Concomitant]
     Active Substance: RAMIPRIL
     Dosage: 2 DAILY UNTIL 1ST JAN 2015 THEN 3 DAILY
     Dates: start: 20141121, end: 20150114
  7. ASPIRIN. [Concomitant]
     Active Substance: ASPIRIN
     Dosage: 1 DF, QD
     Dates: start: 20141121

REACTIONS (1)
  - Visual impairment [Recovered/Resolved]

NARRATIVE: CASE EVENT DATE: 20150129
